FAERS Safety Report 6048243-8 (Version None)
Quarter: 2009Q1

REPORT INFORMATION
  Report Type: 
  Country: None (occurrence: None)
  Receive Date: 20090123
  Receipt Date: 20090119
  Transmission Date: 20090719
  Serious: Yes (Hospitalization, Other)
  Sender: FDA-Public Use
  Company Number: GB-BRISTOL-MYERS SQUIBB COMPANY-14476469

PATIENT
  Age: 26 Year
  Sex: Female

DRUGS (3)
  1. ABILIFY [Suspect]
     Dosage: INITIALLY 15MG,THEN IT WAS INCREASED TO 20MG,25MG,30MG
     Route: 048
  2. DEPAKOTE [Concomitant]
  3. MIRTAZAPINE [Concomitant]

REACTIONS (2)
  - DRUG INEFFECTIVE [None]
  - PULMONARY EMBOLISM [None]
